FAERS Safety Report 16794575 (Version 1)
Quarter: 2019Q4

REPORT INFORMATION
  Report Type: Spontaneous
  Country: US (occurrence: US)
  Receive Date: 20190910
  Receipt Date: 20190910
  Transmission Date: 20200122
  Serious: Yes (Other)
  Sender: FDA-Public Use
  Company Number: None

PATIENT
  Age: 52 Year
  Sex: Female
  Weight: 92.1 kg

DRUGS (2)
  1. ALBUTEROL 90 MCG/ACTUATION INH INHALER [Suspect]
     Active Substance: ALBUTEROL
     Indication: ASTHMA
     Route: 055
     Dates: start: 20190813, end: 20190908
  2. ALBUTEROL 90 MCG/ACTUATION INH INHALER [Suspect]
     Active Substance: ALBUTEROL
     Indication: MULTIPLE CHEMICAL SENSITIVITY
     Route: 055
     Dates: start: 20190813, end: 20190908

REACTIONS (4)
  - Muscle spasms [None]
  - Depressed level of consciousness [None]
  - Product substitution issue [None]
  - Ataxia [None]

NARRATIVE: CASE EVENT DATE: 20180908
